FAERS Safety Report 6102165-2 (Version None)
Quarter: 2009Q1

REPORT INFORMATION
  Report Type: 
  Country: None (occurrence: None)
  Receive Date: 20090304
  Receipt Date: 20090224
  Transmission Date: 20090719
  Serious: Yes (Hospitalization)
  Sender: FDA-Public Use
  Company Number: US-BIOGENIDEC-2008BI025411

PATIENT
  Age: 57 Year
  Sex: Male

DRUGS (3)
  1. AVONEX [Suspect]
     Indication: MULTIPLE SCLEROSIS
     Route: 030
  2. AVONEX [Suspect]
     Route: 030
     Dates: start: 20050114
  3. AVONEX [Suspect]
     Route: 030
     Dates: start: 19980101

REACTIONS (5)
  - FEMUR FRACTURE [None]
  - HAEMORRHAGE [None]
  - HYPERTENSION [None]
  - ROAD TRAFFIC ACCIDENT [None]
  - THERMAL BURN [None]
